FAERS Safety Report 6482268-3 (Version None)
Quarter: 2009Q4

REPORT INFORMATION
  Report Type: 
  Country: None (occurrence: None)
  Receive Date: 20091208
  Receipt Date: 20090419
  Transmission Date: 20100525
  Serious: No
  Sender: FDA-Public Use
  Company Number: US-AMGEN-KDL343537

PATIENT
  Sex: Female

DRUGS (1)
  1. ENBREL [Suspect]
     Indication: JUVENILE ARTHRITIS
     Route: 058
     Dates: start: 20050228

REACTIONS (6)
  - ALOPECIA [None]
  - CONTUSION [None]
  - NAUSEA [None]
  - RASH PAPULAR [None]
  - RASH PRURITIC [None]
  - VERTIGO [None]
